FAERS Safety Report 16599193 (Version 2)
Quarter: 2019Q3

REPORT INFORMATION
  Report Type: Spontaneous
  Country: US (occurrence: US)
  Receive Date: 20190719
  Receipt Date: 20190802
  Transmission Date: 20191004
  Serious: No
  Sender: FDA-Public Use
  Company Number: US-SUNOVION-2019SUN002950

PATIENT
  Age: 60 Year
  Sex: Female

DRUGS (2)
  1. LATUDA [Suspect]
     Active Substance: LURASIDONE HYDROCHLORIDE
     Dosage: 1 DF
     Route: 048
     Dates: end: 20190712
  2. LATUDA [Suspect]
     Active Substance: LURASIDONE HYDROCHLORIDE
     Dosage: 0.5 DF

REACTIONS (6)
  - Tongue disorder [Recovered/Resolved]
  - Dyskinesia [Unknown]
  - Tardive dyskinesia [Unknown]
  - Oral disorder [Recovered/Resolved]
  - Jaw disorder [Recovered/Resolved]
  - Salivary hypersecretion [Unknown]

NARRATIVE: CASE EVENT DATE: 2015
